FAERS Safety Report 7671647-4 (Version None)
Quarter: 2011Q3

REPORT INFORMATION
  Report Type: 
  Country: None (occurrence: None)
  Receive Date: 20110809
  Receipt Date: 20080721
  Transmission Date: 20111222
  Serious: Yes (Other)
  Sender: FDA-Public Use
  Company Number: US-BAYER-200829841NA

PATIENT
  Sex: Female
  Weight: 71.655 kg

DRUGS (24)
  1. MAGNEVIST [Suspect]
     Indication: NUCLEAR MAGNETIC RESONANCE IMAGING
     Dosage: UNK
     Dates: start: 20040622, end: 20040622
  2. MAGNEVIST [Suspect]
     Indication: NUCLEAR MAGNETIC RESONANCE IMAGING BRAIN
     Dosage: 15 ML, ONCE
     Dates: start: 20040622, end: 20040622
  3. MAGNEVIST [Suspect]
     Dosage: 15 ML, ONCE
     Dates: start: 20051025, end: 20051025
  4. MAGNEVIST [Suspect]
     Dosage: UNK
     Dates: start: 20051031, end: 20051031
  5. LASIX [Concomitant]
  6. CLONIDINE [Concomitant]
  7. ARANESP [Concomitant]
  8. PROHANCE [Suspect]
     Indication: NUCLEAR MAGNETIC RESONANCE IMAGING
  9. MULTIHANCE [Suspect]
     Indication: NUCLEAR MAGNETIC RESONANCE IMAGING
  10. COZAAR [Concomitant]
  11. MAGNEVIST [Suspect]
     Indication: ANGIOGRAM
     Dosage: UNK
     Dates: start: 20051005, end: 20051005
  12. OPTIMARK [Suspect]
     Indication: NUCLEAR MAGNETIC RESONANCE IMAGING
  13. PRAVASTATIN [Concomitant]
  14. OMNISCAN [Suspect]
     Indication: NUCLEAR MAGNETIC RESONANCE IMAGING
     Dosage: 10 ML, ONCE
     Dates: start: 20040408, end: 20040408
  15. MAGNEVIST [Suspect]
     Dosage: UNK
     Dates: start: 20040629, end: 20040629
  16. MAGNEVIST [Suspect]
     Dosage: UNK
     Dates: start: 20051108, end: 20051108
  17. PLENDIL [Concomitant]
  18. ASPIRIN [Concomitant]
  19. VITAMIN D [Concomitant]
  20. GADOLINIUM IN UNSPECIFIED DRUG [Suspect]
     Dosage: UNK
     Dates: start: 20070724, end: 20070724
  21. DIOVAN [Concomitant]
  22. RENAGEL [Concomitant]
  23. MAGNEVIST [Suspect]
     Dosage: UNK
     Dates: start: 20061114, end: 20061114
  24. EPOGEN [Concomitant]

REACTIONS (13)
  - SKIN HYPERTROPHY [None]
  - SKIN LESION [None]
  - SKIN ULCER [None]
  - JOINT CONTRACTURE [None]
  - FIBROSIS [None]
  - NEPHROGENIC SYSTEMIC FIBROSIS [None]
  - PAIN [None]
  - EMOTIONAL DISTRESS [None]
  - INJURY [None]
  - SWELLING [None]
  - JOINT STIFFNESS [None]
  - ANXIETY [None]
  - SKIN TIGHTNESS [None]
